FAERS Safety Report 16414767 (Version 16)
Quarter: 2025Q4

REPORT INFORMATION
  Report Type: Spontaneous
  Country: US (occurrence: US)
  Receive Date: 20190611
  Receipt Date: 20251210
  Transmission Date: 20260118
  Serious: Yes (Other)
  Sender: PFIZER
  Company Number: US-PFIZER INC-2019239696

PATIENT
  Age: 77 Year
  Sex: Female

DRUGS (1)
  1. PREMARIN [Suspect]
     Active Substance: ESTROGENS, CONJUGATED
     Dosage: UNK
     Route: 067

REACTIONS (13)
  - Dementia [Unknown]
  - Diabetes mellitus [Unknown]
  - Vascular dementia [Unknown]
  - Fall [Unknown]
  - Illness [Unknown]
  - Back disorder [Unknown]
  - Infection [Unknown]
  - Joint injury [Unknown]
  - Vision blurred [Unknown]
  - Blood glucose decreased [Unknown]
  - Hypersensitivity [Not Recovered/Not Resolved]
  - Asthma [Not Recovered/Not Resolved]
  - Cough [Unknown]

NARRATIVE: CASE EVENT DATE: 20210101
